FAERS Safety Report 6637456-X (Version None)
Quarter: 2010Q1

REPORT INFORMATION
  Report Type: 
  Country: None (occurrence: None)
  Receive Date: 20100311
  Receipt Date: 20100224
  Transmission Date: 20100710
  Serious: Yes (Other)
  Sender: FDA-Public Use
  Company Number: 007377

PATIENT
  Sex: Female

DRUGS (2)
  1. LEVETIRACETAM [Suspect]
     Indication: EPILEPSY
     Dosage: (1000 MG, AT CONCEPTION) ; (2000 MG, DURING PREGNANCY)
  2. CARBAMAZEPINE [Suspect]
     Indication: EPILEPSY
     Dosage: SEE IMAGE

REACTIONS (1)
  - GRAND MAL CONVULSION [None]
